FAERS Safety Report 13670497 (Version 2)
Quarter: 2017Q3

REPORT INFORMATION
  Report Type: Spontaneous
  Country: DE (occurrence: DE)
  Receive Date: 20170620
  Receipt Date: 20170720
  Transmission Date: 20171127
  Serious: Yes (Hospitalization)
  Sender: FDA-Public Use
  Company Number: DE-SA-2017SA110195

PATIENT
  Age: 78 Year
  Sex: Male
  Weight: 85 kg

DRUGS (8)
  1. METOPROLOL. [Concomitant]
     Active Substance: METOPROLOL
     Route: 065
  2. SIMVASTATIN. [Concomitant]
     Active Substance: SIMVASTATIN
     Route: 065
  3. HCT [Concomitant]
     Active Substance: HYDROCHLOROTHIAZIDE
     Route: 065
  4. APIXABAN [Suspect]
     Active Substance: APIXABAN
     Route: 048
     Dates: start: 20170603
  5. VALSARTAN. [Concomitant]
     Active Substance: VALSARTAN
     Route: 065
  6. TAMSULOSIN [Concomitant]
     Active Substance: TAMSULOSIN
     Route: 065
  7. CLOPIDOGREL BISULFATE. [Suspect]
     Active Substance: CLOPIDOGREL BISULFATE
     Route: 048
     Dates: start: 20170602
  8. OMEPRAZOLE. [Concomitant]
     Active Substance: OMEPRAZOLE
     Route: 065

REACTIONS (3)
  - Dyspnoea [Not Recovered/Not Resolved]
  - Asthma [Recovered/Resolved with Sequelae]
  - Lung infection [Recovered/Resolved with Sequelae]

NARRATIVE: CASE EVENT DATE: 20170605
